FAERS Safety Report 5136784-7 (Version None)
Quarter: 2006Q4

REPORT INFORMATION
  Report Type: 
  Country: None (occurrence: None)
  Receive Date: 20061018
  Receipt Date: 20061009
  Transmission Date: 20070319
  Serious: Yes (Hospitalization)
  Sender: FDA-Public Use
  Company Number: 200610186BBE

PATIENT
  Sex: Female

DRUGS (1)
  1. GAMUNEX [Suspect]
     Dates: start: 20060625

REACTIONS (1)
  - LUNG INJURY [None]
